FAERS Safety Report 25707675 (Version 1)
Quarter: 2025Q3

REPORT INFORMATION
  Report Type: Spontaneous
  Country: EU (occurrence: EU)
  Receive Date: 20250820
  Receipt Date: 20250820
  Transmission Date: 20251021
  Serious: Yes (Other)
  Sender: MYLAN
  Company Number: None

PATIENT
  Age: 69 Year
  Sex: Male

DRUGS (16)
  1. ABIRATERONE [Suspect]
     Active Substance: ABIRATERONE
     Indication: Prostate cancer metastatic
     Dosage: 1000 MILLIGRAM, QD
     Dates: start: 20230713
  2. ABIRATERONE [Suspect]
     Active Substance: ABIRATERONE
     Dosage: 1000 MILLIGRAM, QD
     Route: 048
     Dates: start: 20230713
  3. ABIRATERONE [Suspect]
     Active Substance: ABIRATERONE
     Dosage: 1000 MILLIGRAM, QD
     Route: 048
     Dates: start: 20230713
  4. ABIRATERONE [Suspect]
     Active Substance: ABIRATERONE
     Dosage: 1000 MILLIGRAM, QD
     Dates: start: 20230713
  5. PREDNISONE [Suspect]
     Active Substance: PREDNISONE
     Indication: Prostate cancer metastatic
     Dosage: 10 MILLIGRAM, QD
     Dates: start: 20230713
  6. PREDNISONE [Suspect]
     Active Substance: PREDNISONE
     Dosage: 10 MILLIGRAM, QD
     Route: 048
     Dates: start: 20230713
  7. PREDNISONE [Suspect]
     Active Substance: PREDNISONE
     Dosage: 10 MILLIGRAM, QD
     Route: 048
     Dates: start: 20230713
  8. PREDNISONE [Suspect]
     Active Substance: PREDNISONE
     Dosage: 10 MILLIGRAM, QD
     Dates: start: 20230713
  9. Decapeptyl [Concomitant]
     Indication: Prostate cancer metastatic
     Dosage: 11.25 MILLIGRAM, Q3MONTHS ((IM) 3-MONTH EXTENDED-RELEASE FORM)
     Dates: start: 20230713
  10. Decapeptyl [Concomitant]
     Dosage: 11.25 MILLIGRAM, Q3MONTHS ((IM) 3-MONTH EXTENDED-RELEASE FORM)
     Route: 030
     Dates: start: 20230713
  11. Decapeptyl [Concomitant]
     Dosage: 11.25 MILLIGRAM, Q3MONTHS ((IM) 3-MONTH EXTENDED-RELEASE FORM)
     Route: 030
     Dates: start: 20230713
  12. Decapeptyl [Concomitant]
     Dosage: 11.25 MILLIGRAM, Q3MONTHS ((IM) 3-MONTH EXTENDED-RELEASE FORM)
     Dates: start: 20230713
  13. FELODIPINE [Concomitant]
     Active Substance: FELODIPINE
     Indication: Hypertension
     Dosage: 5 MILLIGRAM, QD
  14. FELODIPINE [Concomitant]
     Active Substance: FELODIPINE
     Dosage: 5 MILLIGRAM, QD
     Route: 048
  15. FELODIPINE [Concomitant]
     Active Substance: FELODIPINE
     Dosage: 5 MILLIGRAM, QD
     Route: 048
  16. FELODIPINE [Concomitant]
     Active Substance: FELODIPINE
     Dosage: 5 MILLIGRAM, QD

REACTIONS (2)
  - Embolic stroke [Recovered/Resolved with Sequelae]
  - Hypertension [Recovered/Resolved]

NARRATIVE: CASE EVENT DATE: 20250701
